FAERS Safety Report 6793922-8 (Version None)
Quarter: 2010Q2

REPORT INFORMATION
  Report Type: 
  Country: None (occurrence: None)
  Receive Date: 20100624
  Receipt Date: 20070124
  Transmission Date: 20101027
  Serious: No
  Sender: FDA-Public Use
  Company Number: US-PFIZER INC-ENC200700061

PATIENT
  Age: 78 Year
  Sex: Male
  Weight: 59 kg

DRUGS (31)
  1. ARGATROBAN [Suspect]
     Indication: THROMBOCYTOPENIA
     Dosage: INTERVAL:  HR
     Route: 042
     Dates: start: 20070414, end: 20070416
  2. HEPARIN [Concomitant]
     Dates: start: 20070411, end: 20070411
  3. SODIUM BICARBONATE [Concomitant]
     Dates: start: 20070412
  4. PROTAMINE SULFATE [Concomitant]
     Dates: start: 20070411, end: 20070411
  5. MAGNESIUM HYDROXIDE TAB [Concomitant]
     Dates: start: 20070413
  6. METOPROLOL [Concomitant]
     Dates: start: 20070415
  7. MORPHINE [Concomitant]
     Dates: start: 20070414
  8. OXYCODONE HYDROCHLORIDE, OXYCODONE TEREPHTHALATE, PARACETAMOL [Concomitant]
     Dosage: 5/325 MG
  9. PANTOPRAZOLE [Concomitant]
     Dates: start: 20070411
  10. ALUMINIUM HYDROXIDE, MAGNESIUM HYDROXIDE [Concomitant]
     Dates: start: 20070414
  11. LISINOPRIL [Concomitant]
     Dates: start: 20070414
  12. LEVOTHYROXINE [Concomitant]
     Dates: start: 20070413
  13. INSULIN [Concomitant]
     Dates: start: 20070412
  14. FUROSEMIDE [Concomitant]
     Dates: start: 20070411, end: 20070414
  15. FOLIC ACID [Concomitant]
     Dates: start: 20070414
  16. FERROUS SULFATE TAB [Concomitant]
  17. PARACETAMOL [Concomitant]
     Dates: start: 20070411
  18. EPOGEN [Concomitant]
     Dates: start: 20070413, end: 20070415
  19. SODIUM CITRATE [Concomitant]
     Dates: start: 20070411, end: 20070411
  20. RANITIDINE [Concomitant]
     Dates: start: 20070411, end: 20070411
  21. POTASSIUM CHLORIDE [Concomitant]
     Dosage: 20 MEQ
     Dates: start: 20070411, end: 20070411
  22. PHENYLEPHRINE [Concomitant]
     Dates: start: 20070411, end: 20070411
  23. MIDAZOLAM HYDROCHLORIDE [Concomitant]
     Dates: start: 20070411, end: 20070411
  24. METOCLOPRAMIDE [Concomitant]
     Dates: start: 20070411, end: 20070411
  25. ALBUMIN (HUMAN) [Concomitant]
     Dosage: 5 %
     Dates: start: 20070411, end: 20070411
  26. CALCIUM CHLORIDE DIHYDRATE [Concomitant]
     Dates: start: 20070412, end: 20070412
  27. MAGNESIUM SULFATE [Concomitant]
     Dates: start: 20070411, end: 20070413
  28. SODIUM NITROPRUSSIDE [Concomitant]
     Dates: start: 20070411, end: 20070411
  29. CEFAZOLIN [Concomitant]
     Dates: start: 20070411
  30. ZOLPIDEM TARTRATE [Concomitant]
     Dates: start: 20070417
  31. AMINO ACIDS NOS, CARTHAMUS TINCTORIUS OIL, FRUCTOSE, GLYCINE MAX SEED [Concomitant]
     Dates: start: 20070417

REACTIONS (1)
  - COAGULATION TIME PROLONGED [None]
